FAERS Safety Report 23230694 (Version 1)
Quarter: 2023Q4

REPORT INFORMATION
  Report Type: Spontaneous
  Country: US (occurrence: None)
  Receive Date: 20231123
  Receipt Date: 20231123
  Transmission Date: 20240110
  Serious: Yes (unspecified)
  Sender: FDA-Public Use
  Company Number: None

PATIENT
  Age: 32 Year
  Sex: Male
  Weight: 90 kg

DRUGS (1)
  1. HAND SANITIZER (ALCOHOL) [Suspect]
     Active Substance: ALCOHOL
     Indication: Product used for unknown indication
     Dates: end: 20231006

REACTIONS (4)
  - Dermatitis [None]
  - Dizziness [None]
  - Nausea [None]
  - Loss of personal independence in daily activities [None]

NARRATIVE: CASE EVENT DATE: 20231001
